FAERS Safety Report 24372971 (Version 3)
Quarter: 2025Q1

REPORT INFORMATION
  Report Type: Report from Study
  Country: US (occurrence: US)
  Receive Date: 20240927
  Receipt Date: 20250129
  Transmission Date: 20250409
  Serious: No
  Sender: SUNOVION
  Company Number: US-SUMITOMO PHARMA SWITZERLAND GMBH-2024SPA000172

PATIENT

DRUGS (2)
  1. ORGOVYX [Suspect]
     Active Substance: RELUGOLIX
     Indication: Prostate cancer
     Dosage: 120 MG, QD
     Route: 048
     Dates: start: 20240705
  2. ERLEADA [Concomitant]
     Active Substance: APALUTAMIDE
     Indication: Prostate cancer
     Dosage: 240 MG, QD
     Route: 065
     Dates: start: 20250117

REACTIONS (9)
  - Urinary incontinence [Unknown]
  - Nerve injury [Unknown]
  - Urinary retention [Unknown]
  - Sticky skin [Unknown]
  - Abdominal distension [Unknown]
  - Decreased appetite [Unknown]
  - Hyperhidrosis [Unknown]
  - Constipation [Unknown]
  - Incorrect dose administered [Unknown]
